FAERS Safety Report 5164473-1 (Version None)
Quarter: 2006Q4

REPORT INFORMATION
  Report Type: 
  Country: None (occurrence: None)
  Receive Date: 20061205
  Receipt Date: 20061128
  Transmission Date: 20070319
  Serious: Yes (Other)
  Sender: FDA-Public Use
  Company Number: GB-ROCHE-472992

PATIENT
  Age: 62 Year
  Sex: Female

DRUGS (1)
  1. XENICAL [Suspect]
     Indication: OBESITY
     Route: 048
     Dates: start: 20061101

REACTIONS (2)
  - EYE HAEMORRHAGE [None]
  - VISION BLURRED [None]
